FAERS Safety Report 23451375 (Version 1)
Quarter: 2024Q1

REPORT INFORMATION
  Report Type: Spontaneous
  Country: IT (occurrence: IT)
  Receive Date: 20240129
  Receipt Date: 20240129
  Transmission Date: 20240410
  Serious: Yes (Death, Other)
  Sender: FDA-Public Use
  Company Number: IT-CELLTRION HEALTHCARE HUNGARY KFT-2024IT000014

PATIENT
  Age: 21 Year
  Sex: Male

DRUGS (11)
  1. THALIDOMIDE [Suspect]
     Active Substance: THALIDOMIDE
     Indication: Morphoea
  2. RITUXIMAB [Suspect]
     Active Substance: RITUXIMAB
     Indication: Morphoea
  3. METHOTREXATE [Suspect]
     Active Substance: METHOTREXATE
     Indication: Morphoea
  4. BOSENTAN [Suspect]
     Active Substance: BOSENTAN
     Indication: Morphoea
  5. CYCLOPHOSPHAMIDE [Suspect]
     Active Substance: CYCLOPHOSPHAMIDE
     Indication: Morphoea
  6. ILOPROST [Suspect]
     Active Substance: ILOPROST
     Indication: Morphoea
  7. CYCLOSPORINE [Suspect]
     Active Substance: CYCLOSPORINE
     Indication: Morphoea
  8. MYCOPHENOLATE MOFETIL [Suspect]
     Active Substance: MYCOPHENOLATE MOFETIL
     Indication: Morphoea
  9. IMMUNE GLOBULIN NOS [Suspect]
     Active Substance: IMMUNE GLOBULIN NOS
     Indication: Morphoea
  10. UNSPECIFIED INGREDIENT [Suspect]
     Active Substance: UNSPECIFIED INGREDIENT
     Indication: Morphoea
  11. TOCILIZUMAB [Concomitant]
     Active Substance: TOCILIZUMAB
     Indication: Morphoea

REACTIONS (3)
  - Sepsis [Fatal]
  - Multiple organ dysfunction syndrome [Unknown]
  - Off label use [Unknown]
